FAERS Safety Report 8971615 (Version 1)
Quarter: 2012Q4

REPORT INFORMATION
  Report Type: 
  Country: CY (occurrence: CY)
  Receive Date: 20121217
  Receipt Date: 20121217
  Transmission Date: 20130627
  Serious: Yes (Other)
  Sender: FDA-Public Use
  Company Number: CY-UCBSA-072946

PATIENT
  Age: 0 Year
  Sex: Female

DRUGS (4)
  1. KEPPRA [Suspect]
     Dosage: 2500 MG
     Route: 064
  2. TEGRETOL [Concomitant]
     Indication: CONVULSION
     Dosage: 800 MG
     Route: 064
  3. FOLICIL [Concomitant]
     Dosage: 5 MG
     Route: 064
  4. IRON [Concomitant]
     Route: 064

REACTIONS (2)
  - Premature baby [Recovered/Resolved]
  - Foetal exposure during pregnancy [Recovered/Resolved]
